FAERS Safety Report 9324571 (Version 6)
Quarter: 2013Q4

REPORT INFORMATION
  Report Type: Spontaneous
  Country: US (occurrence: US)
  Receive Date: 20130603
  Receipt Date: 20131227
  Transmission Date: 20140711
  Serious: Yes (Hospitalization, Other)
  Sender: FDA-Public Use
  Company Number: US-009507513-1305USA018017

PATIENT
  Sex: Female
  Weight: 74.83 kg

DRUGS (1)
  1. NUVARING [Suspect]
     Indication: CONTRACEPTION
     Dosage: UNK
     Route: 067
     Dates: start: 200804, end: 200807

REACTIONS (27)
  - Cardiac operation [Unknown]
  - Cerebrovascular accident [Unknown]
  - Cerebrovascular accident [Unknown]
  - Deep vein thrombosis [Unknown]
  - Joint injury [Unknown]
  - Knee operation [Unknown]
  - Foot fracture [Unknown]
  - Dyspnoea [Unknown]
  - Attention deficit/hyperactivity disorder [Unknown]
  - Motion sickness [Unknown]
  - Headache [Unknown]
  - Mental disorder [Unknown]
  - Infectious mononucleosis [Unknown]
  - Anxiety [Unknown]
  - Fall [Unknown]
  - Back pain [Not Recovered/Not Resolved]
  - Back injury [Not Recovered/Not Resolved]
  - Influenza [Unknown]
  - Nasopharyngitis [Unknown]
  - Upper respiratory tract infection [Unknown]
  - Depression [Unknown]
  - Insomnia [Unknown]
  - Cerebrovascular accident [Unknown]
  - Nervous system disorder [Recovered/Resolved]
  - Ear infection [Unknown]
  - Hemianopia heteronymous [Recovering/Resolving]
  - Temporomandibular joint syndrome [Unknown]
